FAERS Safety Report 8572074-8 (Version None)
Quarter: 2012Q3

REPORT INFORMATION
  Report Type: 
  Country: None (occurrence: None)
  Receive Date: 20120806
  Receipt Date: 20120731
  Transmission Date: 20120928
  Serious: Yes (Hospitalization, Other)
  Sender: FDA-Public Use
  Company Number: PHEH2011US012902

PATIENT
  Sex: Female

DRUGS (13)
  1. ADEK [Concomitant]
     Indication: PANCREATIC INSUFFICIENCY
     Route: 048
  2. ALBUTEROL [Concomitant]
     Indication: LUNG DISORDER
  3. PULMOZYME [Concomitant]
  4. MORPHINE [Concomitant]
     Indication: PAIN
     Route: 048
  5. OMEPRAZOLE [Concomitant]
  6. CREON [Concomitant]
     Indication: PANCREATIC INSUFFICIENCY
     Dosage: 3 DF, PRN
     Route: 048
  7. PRILOSEC [Concomitant]
     Indication: GASTROOESOPHAGEAL REFLUX DISEASE
     Dosage: 40 MG, UNK
     Route: 048
  8. ZOFRAN [Concomitant]
  9. ADVAIR DISKUS 100/50 [Concomitant]
  10. TOBI [Suspect]
  11. TOBI [Suspect]
     Indication: CYSTIC FIBROSIS
     Dosage: 300 MG, BID, ALTERNATIVE 28 DAYS
     Dates: end: 20111228
  12. VALTEN [Concomitant]
     Dosage: 10 MG, PRN
     Route: 048
  13. BONIVA [Concomitant]
     Dosage: 150 MG, QMO
     Route: 048

REACTIONS (4)
  - ABDOMINAL PAIN [None]
  - LARYNGITIS [None]
  - DYSPHONIA [None]
  - PANCREATITIS ACUTE [None]
